FAERS Safety Report 23789873 (Version 1)
Quarter: 2024Q2

REPORT INFORMATION
  Report Type: Spontaneous
  Country: US (occurrence: None)
  Receive Date: 20240426
  Receipt Date: 20240426
  Transmission Date: 20240716
  Serious: No
  Sender: FDA-Public Use
  Company Number: None

PATIENT
  Age: 21 Year
  Sex: Female

DRUGS (1)
  1. ICATIBANT ACETATE [Suspect]
     Active Substance: ICATIBANT ACETATE
     Indication: Combined immunodeficiency
     Dosage: OTHER FREQUENCY : UP 3DOSES IN A DAY;?
     Route: 058

REACTIONS (4)
  - Injection site reaction [None]
  - Injection site erythema [None]
  - Injection site warmth [None]
  - Urticaria [None]
